FAERS Safety Report 7793083-2 (Version None)
Quarter: 2011Q4

REPORT INFORMATION
  Report Type: 
  Country: None (occurrence: None)
  Receive Date: 20111003
  Receipt Date: 20110929
  Transmission Date: 20120403
  Serious: Yes (Hospitalization, Other)
  Sender: FDA-Public Use
  Company Number: US-ABBOTT-11P-163-0859107-00

PATIENT
  Sex: Female
  Weight: 73.094 kg

DRUGS (8)
  1. LORTAB [Concomitant]
     Indication: PAIN
  2. HUMIRA [Suspect]
     Indication: RHEUMATOID ARTHRITIS
     Dates: start: 20060101
  3. RESTASIS [Concomitant]
     Indication: DRY EYE
  4. PERCOCET [Concomitant]
     Indication: PAIN
  5. COUMADIN [Concomitant]
     Dosage: THURS, FRI, SATURDAY, 1 IN 1D
  6. XALATAN [Concomitant]
     Indication: GLAUCOMA
  7. PLAQUENIL [Concomitant]
     Indication: RHEUMATOID ARTHRITIS
  8. COUMADIN [Concomitant]
     Indication: PERIPHERAL EMBOLISM
     Dosage: MON, TUES WED, 1 IN 1 D

REACTIONS (6)
  - ARTHRALGIA [None]
  - GLAUCOMA [None]
  - FUNGAL INFECTION [None]
  - DRY EYE [None]
  - JOINT SWELLING [None]
  - THROMBOSIS [None]
